FAERS Safety Report 5582407-2 (Version None)
Quarter: 2007Q4

REPORT INFORMATION
  Report Type: 
  Country: None (occurrence: None)
  Receive Date: 20071130
  Receipt Date: 20070830
  Transmission Date: 20080405
  Serious: Yes (Hospitalization)
  Sender: FDA-Public Use
  Company Number: 2007TG0112

PATIENT
  Sex: Male

DRUGS (2)
  1. FENOFIBRATE [Suspect]
     Indication: HYPERLIPIDAEMIA
     Dosage: 160 MG, PO
     Route: 048
  2. ROSUVASTATIN [Suspect]
     Indication: DYSLIPIDAEMIA
     Dosage: 20 MG, THEN 10 MG, PO
     Route: 048

REACTIONS (5)
  - CHEST PAIN [None]
  - DYSPNOEA [None]
  - MYALGIA [None]
  - MYASTHENIC SYNDROME [None]
  - RHABDOMYOLYSIS [None]
